FAERS Safety Report 5753901-6 (Version None)
Quarter: 2008Q2

REPORT INFORMATION
  Report Type: 
  Country: None (occurrence: None)
  Receive Date: 20080530
  Receipt Date: 20080523
  Transmission Date: 20081010
  Serious: Yes (Death, Life-Threatening, Hospitalization, Disabling)
  Sender: FDA-Public Use
  Company Number: B0521498A

PATIENT
  Age: 62 Year
  Sex: Male

DRUGS (5)
  1. LAMICTAL [Suspect]
     Dosage: 100MG PER DAY
     Route: 048
     Dates: start: 20080201
  2. MERONEM [Suspect]
     Indication: SEPSIS
     Route: 042
     Dates: start: 20080421
  3. CIPROFLOXACIN HCL [Suspect]
     Indication: SEPSIS
     Route: 042
     Dates: start: 20080421
  4. METRONIDAZOLE HCL [Suspect]
     Indication: SEPSIS
     Dosage: 1500MG PER DAY
     Route: 042
     Dates: start: 20080421
  5. INNOHEP [Concomitant]
     Indication: THROMBOSIS PROPHYLAXIS
     Route: 058
     Dates: start: 20080421, end: 20080425

REACTIONS (9)
  - ALTERED STATE OF CONSCIOUSNESS [None]
  - DEATH [None]
  - DISSEMINATED INTRAVASCULAR COAGULATION [None]
  - DRUG HYPERSENSITIVITY [None]
  - HYPOTENSION [None]
  - MULTI-ORGAN FAILURE [None]
  - RASH MACULAR [None]
  - URINARY TRACT OBSTRUCTION [None]
  - UROSEPSIS [None]
